FAERS Safety Report 9618373 (Version 1)
Quarter: 2013Q4

REPORT INFORMATION
  Report Type: Spontaneous
  Country: KR (occurrence: KR)
  Receive Date: 20131014
  Receipt Date: 20131014
  Transmission Date: 20140711
  Serious: Yes (Other)
  Sender: FDA-Public Use
  Company Number: KR-BRISTOL-MYERS SQUIBB COMPANY-19506153

PATIENT
  Sex: Male

DRUGS (2)
  1. BARACLUDE [Suspect]
     Indication: CHRONIC HEPATITIS B
     Dosage: STRATED 1.5YEARS AGO
     Route: 048
  2. BARACLUDE [Suspect]
     Indication: HEPATIC CIRRHOSIS
     Dosage: STRATED 1.5YEARS AGO
     Route: 048

REACTIONS (3)
  - Large intestine polyp [Unknown]
  - Weight decreased [Unknown]
  - Faeces discoloured [Unknown]
